FAERS Safety Report 7027680-9 (Version None)
Quarter: 2010Q4

REPORT INFORMATION
  Report Type: 
  Country: None (occurrence: None)
  Receive Date: 20101004
  Receipt Date: 20100927
  Transmission Date: 20110411
  Serious: Yes (Hospitalization)
  Sender: FDA-Public Use
  Company Number: US-AMGEN-KDC441000

PATIENT
  Age: 63 Year
  Sex: Male
  Weight: 108 kg

DRUGS (3)
  1. PANITUMUMAB [Suspect]
     Indication: PANCREATIC CARCINOMA
     Route: 042
     Dates: start: 20100706
  2. GEMCITABINE [Suspect]
     Route: 042
     Dates: start: 20100706
  3. TARCEVA [Suspect]
     Route: 048
     Dates: start: 20100706

REACTIONS (1)
  - HYPERTENSION [None]
